FAERS Safety Report 11520440 (Version 2)
Quarter: 2015Q4

REPORT INFORMATION
  Report Type: Spontaneous
  Country: US (occurrence: US)
  Receive Date: 20150918
  Receipt Date: 20151102
  Transmission Date: 20160304
  Serious: No
  Sender: FDA-Public Use
  Company Number: PHEH2015US018251

PATIENT
  Age: 79 Year
  Sex: Male
  Weight: 101.59 kg

DRUGS (1)
  1. EXJADE [Suspect]
     Active Substance: DEFERASIROX
     Indication: MYELODYSPLASTIC SYNDROME
     Dosage: 20 MG, QD
     Route: 048
     Dates: start: 20150101, end: 20150608

REACTIONS (6)
  - Haemoglobin decreased [Unknown]
  - Asthenia [Unknown]
  - Anaemia [Unknown]
  - Abnormal faeces [Unknown]
  - Visual impairment [Recovered/Resolved]
  - Malaise [Unknown]

NARRATIVE: CASE EVENT DATE: 20150609
